FAERS Safety Report 6343452-2 (Version None)
Quarter: 2009Q3

REPORT INFORMATION
  Report Type: 
  Country: None (occurrence: None)
  Receive Date: 20090904
  Receipt Date: 20090904
  Transmission Date: 20100115
  Serious: No
  Sender: FDA-Public Use
  Company Number: None

PATIENT
  Sex: Female
  Weight: 50.8029 kg

DRUGS (1)
  1. BUPROPION HCL [Suspect]
     Indication: DEPRESSION
     Dosage: 300MG XL ONCE DAILY BY MOUTH
     Route: 048
     Dates: start: 20090401, end: 20090701

REACTIONS (4)
  - DEPRESSION [None]
  - FATIGUE [None]
  - FEELING ABNORMAL [None]
  - SOMNOLENCE [None]
